FAERS Safety Report 4285667-3 (Version None)
Quarter: 2004Q1

REPORT INFORMATION
  Report Type: 
  Country: None (occurrence: None)
  Receive Date: 20040202
  Receipt Date: 20040120
  Transmission Date: 20041129
  Serious: Yes (Other)
  Sender: FDA-Public Use
  Company Number: 2004195151US

PATIENT
  Age: 60 Year
  Sex: Female

DRUGS (1)
  1. DELTASONE [Suspect]
     Dosage: 60 MG, QD

REACTIONS (15)
  - ABDOMINAL PAIN [None]
  - ACTINOMYCOSIS [None]
  - ANTINUCLEAR ANTIBODY POSITIVE [None]
  - BACTERAEMIA [None]
  - CHILLS [None]
  - DIARRHOEA [None]
  - DIVERTICULUM [None]
  - ILIAC ARTERY STENOSIS [None]
  - MESENTERIC ARTERY STENOSIS [None]
  - NAUSEA [None]
  - RENAL ARTERY STENOSIS [None]
  - SUBCLAVIAN ARTERY STENOSIS [None]
  - TEMPORAL ARTERITIS [None]
  - VOMITING [None]
  - WEIGHT DECREASED [None]
